FAERS Safety Report 9745108 (Version 1)
Quarter: 2013Q4

REPORT INFORMATION
  Report Type: Spontaneous
  Country: TR (occurrence: TR)
  Receive Date: 20131211
  Receipt Date: 20131211
  Transmission Date: 20140711
  Serious: Yes (Hospitalization, Other)
  Sender: FDA-Public Use
  Company Number: TR-ROCHE-1318161

PATIENT
  Sex: Female

DRUGS (7)
  1. ACTILYSE [Suspect]
     Indication: KAWASAKI^S DISEASE
     Dosage: DAILY DOSE: 0.05 MG/KG/H INFUSION, FOLLOWED BY DECREASING DOSES
     Route: 065
  2. PERSANTIN [Suspect]
     Indication: KAWASAKI^S DISEASE
     Dosage: DASILY DOSE: 6 MG/KG IN 3 DOSES
     Route: 065
  3. IMMUNOGLOBULIN [Suspect]
     Indication: KAWASAKI^S DISEASE
     Dosage: DAILY DOSE: 2 G/KG 12 H INFUSION
     Route: 042
  4. ASPIRIN [Suspect]
     Indication: KAWASAKI^S DISEASE
     Dosage: DAILY DOSE: 80 MG/KG IN 4 DOSES
     Route: 065
  5. WARFARIN [Suspect]
     Indication: KAWASAKI^S DISEASE
     Route: 065
  6. UNFRACTIONATED HEPARIN [Suspect]
     Indication: KAWASAKI^S DISEASE
     Dosage: DAILY DOSE: 100 U/KG BOLUS, FOLLOWED BY 14 U/KG/H INFUSION WITH DECREASING DOSES
     Route: 065
  7. DALTEPARIN SODIUM [Suspect]
     Indication: KAWASAKI^S DISEASE
     Route: 065

REACTIONS (3)
  - Aneurysm [Unknown]
  - Thrombosis [Unknown]
  - Drug ineffective [Unknown]
